FAERS Safety Report 5824644-5 (Version None)
Quarter: 2008Q3

REPORT INFORMATION
  Report Type: 
  Country: None (occurrence: None)
  Receive Date: 20080721
  Receipt Date: 20080704
  Transmission Date: 20090109
  Serious: Yes (Hospitalization)
  Sender: FDA-Public Use
  Company Number: DSA_32154_2008

PATIENT
  Sex: Male

DRUGS (6)
  1. MONO-TILDIEM (MONO-TILDIEM - DILTIAZEM HYDROCHLORIDE (SLOW RELEASE)) 2 [Suspect]
     Indication: DRUG USE FOR UNKNOWN INDICATION
     Dosage: (200 MG QD ORAL)
     Route: 048
     Dates: start: 20080606, end: 20080616
  2. ZOCOR [Suspect]
     Indication: DRUG USE FOR UNKNOWN INDICATION
     Dosage: (DF ORAL)
     Route: 048
     Dates: end: 20080616
  3. PLAVIX [Concomitant]
  4. ENALAPRIL MALEATE [Concomitant]
  5. CELECTOL [Concomitant]
  6. FLUDEX /00340101/ [Concomitant]

REACTIONS (1)
  - TOXIC SKIN ERUPTION [None]
